FAERS Safety Report 15526368 (Version 1)
Quarter: 2018Q4

REPORT INFORMATION
  Report Type: Spontaneous
  Country: JP (occurrence: JP)
  Receive Date: 20181018
  Receipt Date: 20181018
  Transmission Date: 20190205
  Serious: Yes (Other)
  Sender: FDA-Public Use
  Company Number: JP-ALLERGAN-1849544US

PATIENT
  Age: 13 Year
  Sex: Female

DRUGS (4)
  1. MAGMITT [Concomitant]
     Active Substance: MAGNESIUM OXIDE
     Indication: IRRITABLE BOWEL SYNDROME
     Dosage: 330 MG, BID
     Route: 048
     Dates: start: 20170915, end: 20171023
  2. METLIGINE [Concomitant]
     Active Substance: MIDODRINE HYDROCHLORIDE
     Indication: ORTHOSTATIC INTOLERANCE
     Dosage: 2 MG, BID
     Route: 048
     Dates: start: 20170915, end: 20180510
  3. MIYA-BM [Concomitant]
     Active Substance: CLOSTRIDIUM BUTYRICUM SPORES STRAIN M-55
     Indication: IRRITABLE BOWEL SYNDROME
     Dosage: 1 G, BID
     Route: 048
     Dates: start: 20170915
  4. LINACLOTIDE - BP [Suspect]
     Active Substance: LINACLOTIDE
     Indication: IRRITABLE BOWEL SYNDROME
     Dosage: 0.25 MG, QD
     Route: 048
     Dates: start: 20170922, end: 20170924

REACTIONS (6)
  - Foaming at mouth [Recovered/Resolved]
  - Body temperature increased [Recovered/Resolved]
  - Off label use [Unknown]
  - Dizziness [Recovered/Resolved]
  - Feeling abnormal [Recovered/Resolved]
  - Malaise [Recovered/Resolved]

NARRATIVE: CASE EVENT DATE: 20170922
